FAERS Safety Report 9120752 (Version 4)
Quarter: 2013Q3

REPORT INFORMATION
  Report Type: Report from Study
  Country: DE (occurrence: DE)
  Receive Date: 20130226
  Receipt Date: 20130711
  Transmission Date: 20140515
  Serious: Yes (Life-Threatening, Hospitalization)
  Sender: FDA-Public Use
  Company Number: DE-ROCHE-1193528

PATIENT
  Sex: Male

DRUGS (2)
  1. RANIBIZUMAB [Suspect]
     Indication: AGE-RELATED MACULAR DEGENERATION
     Dosage: LAST DOSE RECEIVED ON 12/NOV/2012.
     Route: 050
     Dates: start: 20120319
  2. MARCUMAR [Concomitant]

REACTIONS (2)
  - Myocardial infarction [Recovering/Resolving]
  - Lens disorder [Recovered/Resolved]
